FAERS Safety Report 6408399-1 (Version None)
Quarter: 2009Q4

REPORT INFORMATION
  Report Type: 
  Country: None (occurrence: None)
  Receive Date: 20091019
  Receipt Date: 20091015
  Transmission Date: 20100525
  Serious: Yes (Death)
  Sender: FDA-Public Use
  Company Number: 2009SP022362

PATIENT
  Age: 36 Year
  Sex: Female

DRUGS (5)
  1. TEMODAR [Suspect]
     Indication: SYNOVIAL SARCOMA METASTATIC
     Dosage: 200 MG; QD; PO, 200 MG; QD; PO
     Route: 048
     Dates: start: 20090518, end: 20090522
  2. TEMODAR [Suspect]
     Indication: SYNOVIAL SARCOMA METASTATIC
     Dosage: 200 MG; QD; PO, 200 MG; QD; PO
     Route: 048
     Dates: start: 20090609, end: 20090611
  3. DOXORUBICIN HCL [Concomitant]
  4. CISPLATIN [Concomitant]
  5. PEGFILGRASTIM [Concomitant]

REACTIONS (3)
  - BONE MARROW FAILURE [None]
  - DISEASE PROGRESSION [None]
  - SYNOVIAL SARCOMA METASTATIC [None]
